FAERS Safety Report 7009727-9 (Version None)
Quarter: 2010Q3

REPORT INFORMATION
  Report Type: 
  Country: None (occurrence: None)
  Receive Date: 20100923
  Receipt Date: 20100914
  Transmission Date: 20110219
  Serious: Yes (Hospitalization, Disabling, Other)
  Sender: FDA-Public Use
  Company Number: GB-ABBOTT-10P-167-0665878-00

PATIENT
  Age: 64 Year
  Sex: Male

DRUGS (4)
  1. PROSTAP SR [Suspect]
     Indication: PROSTATE CANCER
     Route: 058
     Dates: start: 20100601
  2. TRAMADOL [Concomitant]
     Indication: PRODUCT USED FOR UNKNOWN INDICATION
     Route: 048
  3. CITALOPRAM HYDROBROMIDE [Concomitant]
     Indication: PRODUCT USED FOR UNKNOWN INDICATION
     Route: 048
     Dates: start: 20100121
  4. LANSOPRAZOLE [Concomitant]
     Indication: PRODUCT USED FOR UNKNOWN INDICATION
     Dosage: 30 MG
     Route: 048
     Dates: start: 20070520

REACTIONS (7)
  - ABNORMAL BEHAVIOUR [None]
  - AGGRESSION [None]
  - GAMBLING [None]
  - HORMONE LEVEL ABNORMAL [None]
  - HOT FLUSH [None]
  - MOOD ALTERED [None]
  - PERSONALITY CHANGE [None]
